FAERS Safety Report 5010550-5 (Version None)
Quarter: 2006Q2

REPORT INFORMATION
  Report Type: 
  Country: None (occurrence: None)
  Receive Date: 20060525
  Receipt Date: 20060517
  Transmission Date: 20061013
  Serious: Yes (Hospitalization)
  Sender: FDA-Public Use
  Company Number: FR-JNJFOC-20060401905

PATIENT
  Age: 6 Decade
  Sex: Male

DRUGS (4)
  1. REMICADE [Suspect]
     Route: 042
  2. REMICADE [Suspect]
     Route: 042
  3. REMICADE [Suspect]
     Route: 042
  4. REMICADE [Suspect]
     Indication: CROHN'S DISEASE
     Route: 042

REACTIONS (11)
  - ANOREXIA [None]
  - DEHYDRATION [None]
  - GASTROENTERITIS [None]
  - HYPONATRAEMIA [None]
  - HYPOVOLAEMIA [None]
  - INFLAMMATION [None]
  - LEUKOCYTOSIS [None]
  - RENAL FAILURE [None]
  - SKIN WRINKLING [None]
  - THROMBOCYTHAEMIA [None]
  - VOLUME BLOOD DECREASED [None]
